FAERS Safety Report 6237130-8 (Version None)
Quarter: 2009Q2

REPORT INFORMATION
  Report Type: 
  Country: None (occurrence: None)
  Receive Date: 20090619
  Receipt Date: 20090421
  Transmission Date: 20091009
  Serious: No
  Sender: FDA-Public Use
  Company Number: US-ASTRAZENECA-2009UW10041

PATIENT
  Sex: Male

DRUGS (5)
  1. SYMBICORT [Suspect]
     Indication: CHRONIC OBSTRUCTIVE PULMONARY DISEASE
     Dosage: 160 MG 2 PUFFS DAILY
     Route: 055
  2. PROVENTIL-HFA [Concomitant]
  3. HYDROCHLOROTHIAZIDE [Concomitant]
  4. PREVACID [Concomitant]
  5. ADVAIR HFA [Concomitant]

REACTIONS (1)
  - DYSPNOEA [None]
